FAERS Safety Report 19624480 (Version 2)
Quarter: 2021Q3

REPORT INFORMATION
  Report Type: Spontaneous
  Country: US (occurrence: US)
  Receive Date: 20210728
  Receipt Date: 20210818
  Transmission Date: 20211014
  Serious: No
  Sender: FDA-Public Use
  Company Number: US-TEVA-2021-US-1934456

PATIENT
  Sex: Female

DRUGS (2)
  1. ALPRAZOLAM GENERIC [Concomitant]
     Active Substance: ALPRAZOLAM
     Route: 065
  2. METOPROLOL SUCCINATE TEVA [Suspect]
     Active Substance: METOPROLOL SUCCINATE
     Route: 065

REACTIONS (5)
  - Product shape issue [Unknown]
  - Dizziness [Recovered/Resolved]
  - Product physical issue [Unknown]
  - Feeling abnormal [Unknown]
  - Hypersensitivity [Unknown]
